FAERS Safety Report 13701325 (Version 1)
Quarter: 2017Q2

REPORT INFORMATION
  Report Type: Spontaneous
  Country: US (occurrence: US)
  Receive Date: 20170628
  Receipt Date: 20170628
  Transmission Date: 20170830
  Serious: Yes (Hospitalization)
  Sender: FDA-Public Use
  Company Number: None

PATIENT
  Age: 56 Year
  Sex: Female

DRUGS (30)
  1. VALTREX [Concomitant]
     Active Substance: VALACYCLOVIR HYDROCHLORIDE
  2. TOPIRAMATE. [Concomitant]
     Active Substance: TOPIRAMATE
  3. BOTOX [Concomitant]
     Active Substance: ONABOTULINUMTOXINA
  4. EPIDURAL [Concomitant]
  5. KEFLEX [Concomitant]
     Active Substance: CEPHALEXIN
  6. ORENCIA [Suspect]
     Active Substance: ABATACEPT
     Indication: RHEUMATOID ARTHRITIS
     Route: 058
     Dates: start: 20141223
  7. METHOTREXATE. [Concomitant]
     Active Substance: METHOTREXATE
  8. PROTONIX [Concomitant]
     Active Substance: PANTOPRAZOLE SODIUM
  9. LEVOTHROID [Concomitant]
     Active Substance: LEVOTHYROXINE SODIUM
  10. IMITREX [Concomitant]
     Active Substance: SUMATRIPTAN SUCCINATE
  11. MOBIC [Concomitant]
     Active Substance: MELOXICAM
  12. MELOXICAM. [Concomitant]
     Active Substance: MELOXICAM
  13. FISH OIL [Concomitant]
     Active Substance: FISH OIL
  14. LEFLUNOMIDE. [Concomitant]
     Active Substance: LEFLUNOMIDE
  15. PLAQUENIL [Concomitant]
     Active Substance: HYDROXYCHLOROQUINE SULFATE
  16. PREDNISONE. [Concomitant]
     Active Substance: PREDNISONE
  17. ZOLPIDEM [Concomitant]
     Active Substance: ZOLPIDEM\ZOLPIDEM TARTRATE
  18. VITAMIN D [Concomitant]
     Active Substance: CHOLECALCIFEROL
  19. AZITHROMYCIN ANHYDROUS. [Concomitant]
     Active Substance: AZITHROMYCIN ANHYDROUS
  20. METHYLPRED [Concomitant]
     Active Substance: METHYLPREDNISOLONE
  21. TOPAMAX [Concomitant]
     Active Substance: TOPIRAMATE
  22. RELAFEN [Concomitant]
     Active Substance: NABUMETONE
  23. GLUCOSAMINE [Concomitant]
     Active Substance: GLUCOSAMINE
  24. LUNESTA [Concomitant]
     Active Substance: ESZOPICLONE
  25. TIROSINT [Concomitant]
     Active Substance: LEVOTHYROXINE SODIUM
  26. OXYCODONE [Concomitant]
     Active Substance: OXYCODONE
  27. NABUMETONE. [Concomitant]
     Active Substance: NABUMETONE
  28. PANTOPRAZOLE [Concomitant]
     Active Substance: PANTOPRAZOLE
  29. FENTANYL. [Concomitant]
     Active Substance: FENTANYL
  30. CEPHALEXIN. [Concomitant]
     Active Substance: CEPHALEXIN

REACTIONS (6)
  - Abdominal operation [None]
  - Gastrointestinal obstruction [None]
  - Gastrointestinal ulcer [None]
  - Abdominal pain [None]
  - Appendicectomy [None]
  - Colon operation [None]

NARRATIVE: CASE EVENT DATE: 20170612
